FAERS Safety Report 18332336 (Version 1)
Quarter: 2020Q4

REPORT INFORMATION
  Report Type: Spontaneous
  Country: CN (occurrence: CN)
  Receive Date: 20201001
  Receipt Date: 20201001
  Transmission Date: 20210113
  Serious: Yes (Other)
  Sender: FDA-Public Use
  Company Number: CN-LUPIN PHARMACEUTICALS INC.-2020-06558

PATIENT
  Age: 9 Day
  Sex: Female
  Weight: 3 kg

DRUGS (1)
  1. CEFUROXIME. [Suspect]
     Active Substance: CEFUROXIME
     Indication: NEONATAL PNEUMONIA
     Dosage: 25 MILLIGRAM/KILOGRAM, TID
     Route: 042

REACTIONS (3)
  - Drug resistance [Unknown]
  - Tachypnoea [Unknown]
  - Pyrexia [Unknown]
